FAERS Safety Report 15677021 (Version 2)
Quarter: 2021Q4

REPORT INFORMATION
  Report Type: Spontaneous
  Country: US (occurrence: US)
  Receive Date: 20181130
  Receipt Date: 20211014
  Transmission Date: 20220304
  Serious: Yes (Disabling, Other)
  Sender: FDA-Public Use
  Company Number: US-TEVA-2018-US-980461

PATIENT
  Age: 61 Year
  Sex: Female
  Weight: 68 kg

DRUGS (21)
  1. DOCETAXEL [Suspect]
     Active Substance: DOCETAXEL
     Indication: Hormone receptor positive HER2 negative breast cancer
     Dosage: NUMBER OF CYCLE - 06, FREQUENCY - EVERY THREE WEEKS
     Route: 065
     Dates: start: 20140410, end: 20140723
  2. DOCETAXEL [Suspect]
     Active Substance: DOCETAXEL
     Indication: Invasive ductal breast carcinoma
     Dosage: NUMBER OF CYCLE - 06, FREQUENCY - EVERY THREE WEEKS
     Route: 065
     Dates: start: 20140410, end: 20140723
  3. DOCETAXEL [Suspect]
     Active Substance: DOCETAXEL
     Dosage: NUMBER OF CYCLE - 06, FREQUENCY - EVERY THREE WEEKS
     Route: 065
     Dates: start: 20140410, end: 20140723
  4. DOCETAXEL [Suspect]
     Active Substance: DOCETAXEL
     Indication: Hormone receptor positive HER2 negative breast cancer
     Dosage: NUMBER OF CYCLE - 06, FREQUENCY - EVERY THREE WEEKS
     Route: 065
     Dates: start: 20140410, end: 20140723
  5. DOCETAXEL [Suspect]
     Active Substance: DOCETAXEL
     Indication: Invasive ductal breast carcinoma
     Dosage: NUMBER OF CYCLE - 06, FREQUENCY - EVERY THREE WEEKS
     Route: 065
     Dates: start: 20140410, end: 20140723
  6. NEULASTA [Suspect]
     Active Substance: PEGFILGRASTIM
     Indication: Hormone receptor positive HER2 negative breast cancer
     Route: 058
     Dates: start: 20140411, end: 20140411
  7. NEULASTA [Suspect]
     Active Substance: PEGFILGRASTIM
     Indication: Invasive ductal breast carcinoma
     Route: 058
     Dates: start: 20140502, end: 20140502
  8. NEULASTA [Suspect]
     Active Substance: PEGFILGRASTIM
     Route: 058
     Dates: start: 20140523, end: 20140523
  9. NEULASTA [Suspect]
     Active Substance: PEGFILGRASTIM
     Route: 058
     Dates: start: 20140613, end: 20140613
  10. NEULASTA [Suspect]
     Active Substance: PEGFILGRASTIM
     Route: 058
     Dates: start: 20140704, end: 20140704
  11. ADRIAMYCIN [Suspect]
     Active Substance: DOXORUBICIN HYDROCHLORIDE
     Indication: Hormone receptor positive HER2 negative breast cancer
     Dosage: NUMBER OF CYCLE - 06, FREQUENCY - EVERY THREE WEEKS
     Route: 065
     Dates: start: 20140410, end: 20140723
  12. ADRIAMYCIN [Suspect]
     Active Substance: DOXORUBICIN HYDROCHLORIDE
     Indication: Invasive ductal breast carcinoma
  13. CYCLOPHOSPHAMIDE [Suspect]
     Active Substance: CYCLOPHOSPHAMIDE
     Indication: Hormone receptor positive HER2 negative breast cancer
     Dosage: NUMBER OF CYCLE - 06, FREQUENCY - EVERY THREE WEEKS
     Route: 065
     Dates: start: 20140410, end: 20140723
  14. CYCLOPHOSPHAMIDE [Suspect]
     Active Substance: CYCLOPHOSPHAMIDE
     Indication: Invasive ductal breast carcinoma
  15. PERCOCET [Concomitant]
     Active Substance: ACETAMINOPHEN\OXYCODONE HYDROCHLORIDE
     Indication: Back pain
     Dosage: ACETAMINOPHEN 325 MG- OXYCODONE 5 MG, TAKE 1-2 TABLETS BY MOUTH EVERY 6 HOURS AS NEEDED.
     Route: 048
     Dates: start: 2007
  16. CELEBREX [Concomitant]
     Active Substance: CELECOXIB
     Route: 065
     Dates: start: 2010
  17. XARELTO [Concomitant]
     Active Substance: RIVAROXABAN
     Route: 065
     Dates: start: 2010
  18. DICLOFENAC [Concomitant]
     Active Substance: DICLOFENAC
     Route: 048
  19. LISINOPRIL [Concomitant]
     Active Substance: LISINOPRIL
     Dosage: 5 MILLIGRAM DAILY;
     Route: 065
  20. VITAMINS [Concomitant]
     Active Substance: VITAMINS
     Dosage: 1 DOSAGE FORMS DAILY; WITH FOOD
     Route: 048
  21. PHENTERMINE [Concomitant]
     Active Substance: PHENTERMINE
     Dosage: 30 MILLIGRAM DAILY; BEFORE BREAKFAST
     Route: 048

REACTIONS (24)
  - Alopecia totalis [Not Recovered/Not Resolved]
  - Alopecia areata [Not Recovered/Not Resolved]
  - Madarosis [Not Recovered/Not Resolved]
  - Neutropenia [Recovered/Resolved]
  - Deep vein thrombosis [Unknown]
  - Subclavian vein thrombosis [Recovering/Resolving]
  - Subclavian vein occlusion [Recovering/Resolving]
  - Hair texture abnormal [Not Recovered/Not Resolved]
  - Hair colour changes [Not Recovered/Not Resolved]
  - Fatigue [Not Recovered/Not Resolved]
  - Decreased appetite [Recovering/Resolving]
  - Weight decreased [Recovering/Resolving]
  - Rash [Recovered/Resolved]
  - Diarrhoea [Recovered/Resolved]
  - Abdominal pain [Recovered/Resolved]
  - Nausea [Recovered/Resolved]
  - Vomiting [Recovered/Resolved]
  - Abdominal distension [Not Recovered/Not Resolved]
  - Swelling [Recovering/Resolving]
  - Peripheral swelling [Recovering/Resolving]
  - Musculoskeletal discomfort [Recovering/Resolving]
  - Limb discomfort [Recovering/Resolving]
  - Jugular vein thrombosis [Recovering/Resolving]
  - Axillary vein thrombosis [Recovering/Resolving]

NARRATIVE: CASE EVENT DATE: 20140401
